FAERS Safety Report 9426299 (Version 1)
Quarter: 2013Q3

REPORT INFORMATION
  Report Type: Spontaneous
  Country: US (occurrence: US)
  Receive Date: 20130730
  Receipt Date: 20130730
  Transmission Date: 20140515
  Serious: No
  Sender: FDA-Public Use
  Company Number: US-009507513-1307USA013917

PATIENT
  Sex: 0

DRUGS (2)
  1. TICE BCG LIVE [Suspect]
     Indication: BLADDER CANCER
     Dosage: UNK
  2. INTRONA [Suspect]
     Indication: BLADDER CANCER

REACTIONS (2)
  - Drug ineffective [Unknown]
  - Off label use [Unknown]
